FAERS Safety Report 10235108 (Version 1)
Quarter: 2014Q2

REPORT INFORMATION
  Report Type: Spontaneous
  Country: US (occurrence: None)
  Receive Date: 20140612
  Receipt Date: 20140612
  Transmission Date: 20141212
  Serious: No
  Sender: FDA-Public Use
  Company Number: None

PATIENT
  Age: 34 Year
  Sex: Male
  Weight: 87.09 kg

DRUGS (1)
  1. SUBOXONE [Suspect]
     Indication: DRUG DEPENDENCE
     Dosage: 2 PILLS ONCE DAILY TAKEN UNDER THE TONGUE
     Dates: start: 20140401, end: 20140611

REACTIONS (3)
  - Drug withdrawal syndrome [None]
  - Product quality issue [None]
  - Product substitution issue [None]
